FAERS Safety Report 13446977 (Version 1)
Quarter: 2017Q2

REPORT INFORMATION
  Report Type: Spontaneous
  Country: US (occurrence: US)
  Receive Date: 20170415
  Receipt Date: 20170415
  Transmission Date: 20170830
  Serious: Yes (Other)
  Sender: FDA-Public Use
  Company Number: None

PATIENT
  Age: 54 Year
  Sex: Male
  Weight: 85.05 kg

DRUGS (11)
  1. MEN^S MULTIVITAMINS AND MINERALS [Concomitant]
  2. PB8 PROBIOTICS [Concomitant]
  3. AZIITHROMYCIN [Suspect]
     Active Substance: AZITHROMYCIN
     Indication: SINUSITIS
     Dosage: ?          QUANTITY:5 TABLET(S);?
     Route: 048
     Dates: start: 20170409, end: 20170413
  4. HIGH T [Concomitant]
  5. VIAGRA [Concomitant]
     Active Substance: SILDENAFIL CITRATE
  6. TRIAMCINOLONE [Concomitant]
     Active Substance: TRIAMCINOLONE
  7. VENTOLIN [Concomitant]
     Active Substance: ALBUTEROL SULFATE
  8. PROCTOZONE [Concomitant]
     Active Substance: HYDROCORTISONE
  9. VITAMIN C AND ZINC (RDA 100% ONLY) [Concomitant]
  10. STAMINOL [Concomitant]
  11. NASACORT [Concomitant]
     Active Substance: TRIAMCINOLONE ACETONIDE

REACTIONS (3)
  - Sunburn [None]
  - Product label issue [None]
  - Photosensitivity reaction [None]

NARRATIVE: CASE EVENT DATE: 20170414
